FAERS Safety Report 6851916-8 (Version None)
Quarter: 2010Q3

REPORT INFORMATION
  Report Type: 
  Country: None (occurrence: None)
  Receive Date: 20100717
  Receipt Date: 20071101
  Transmission Date: 20110219
  Serious: No
  Sender: FDA-Public Use
  Company Number: US-PFIZER INC-2007093392

PATIENT
  Sex: Male
  Weight: 95.454 kg

DRUGS (1)
  1. CHANTIX [Suspect]
     Indication: SMOKING CESSATION THERAPY
     Dates: start: 20071016, end: 20071031

REACTIONS (4)
  - ABNORMAL DREAMS [None]
  - HYPOPHAGIA [None]
  - NERVOUSNESS [None]
  - STRESS [None]
